FAERS Safety Report 5314781-6 (Version None)
Quarter: 2007Q2

REPORT INFORMATION
  Report Type: 
  Country: None (occurrence: None)
  Receive Date: 20070502
  Receipt Date: 20070427
  Transmission Date: 20071010
  Serious: Yes (Other)
  Sender: FDA-Public Use
  Company Number: US-GLAXOSMITHKLINE-A0649076A

PATIENT
  Sex: Female

DRUGS (2)
  1. PAXIL [Suspect]
     Dosage: 20MG PER DAY
     Route: 048
     Dates: start: 20070301
  2. FORTAMET [Concomitant]

REACTIONS (8)
  - BINGE EATING [None]
  - BIPOLAR I DISORDER [None]
  - ILL-DEFINED DISORDER [None]
  - IRRITABILITY [None]
  - NAUSEA [None]
  - NERVOUSNESS [None]
  - PURGING [None]
  - SUICIDAL IDEATION [None]
